FAERS Safety Report 24096201 (Version 1)
Quarter: 2024Q3

REPORT INFORMATION
  Report Type: Spontaneous
  Country: US (occurrence: None)
  Receive Date: 20240715
  Receipt Date: 20240715
  Transmission Date: 20241017
  Serious: Yes (Other)
  Sender: Public
  Company Number: None

PATIENT
  Age: 4 Year
  Sex: Female

DRUGS (1)
  1. TABLOID [Suspect]
     Active Substance: THIOGUANINE
     Indication: Acute lymphocytic leukaemia
     Dosage: FREQUENCY : DAILY;?
     Dates: start: 20240705

REACTIONS (5)
  - Incorrect dose administered [None]
  - Product use issue [None]
  - Decreased appetite [None]
  - Headache [None]
  - Diarrhoea [None]
